FAERS Safety Report 22052838 (Version 3)
Quarter: 2024Q1

REPORT INFORMATION
  Report Type: Report from Study
  Country: US (occurrence: US)
  Receive Date: 20230302
  Receipt Date: 20240207
  Transmission Date: 20240410
  Serious: Yes (Hospitalization, Other)
  Sender: FDA-Public Use
  Company Number: US-ABBVIE-4323991

PATIENT
  Age: 55 Year
  Sex: Male

DRUGS (5)
  1. SKYRIZI [Suspect]
     Active Substance: RISANKIZUMAB-RZAA
     Indication: Crohn^s disease
     Dosage: 360MG/2.4M?WEEK 12?ONE IN ONCE FREQUENCY?FORM STRENGTH: 2.4 MILLILITRE(S)
     Route: 058
  2. SKYRIZI [Suspect]
     Active Substance: RISANKIZUMAB-RZAA
     Dosage: 360MG/2.4M?FORM STRENGTH: 2.4 MILLILITRE(S)
     Route: 058
  3. SKYRIZI [Suspect]
     Active Substance: RISANKIZUMAB-RZAA
     Indication: Crohn^s disease
     Dosage: WEEK 4?ONE IN ONCE FREQUENCY?FORM STRENGTH: 600 MILLIGRAM
     Route: 042
  4. SKYRIZI [Suspect]
     Active Substance: RISANKIZUMAB-RZAA
     Indication: Crohn^s disease
     Dosage: WEEK 8?ONE IN ONCE FREQUENCY?FORM STRENGTH: 600 MILLIGRAM
     Route: 042
  5. SKYRIZI [Suspect]
     Active Substance: RISANKIZUMAB-RZAA
     Indication: Crohn^s disease
     Dosage: WEEK 0?ONE IN ONCE FREQUENCY?FORM STRENGTH: 600 MILLIGRAM
     Route: 042
     Dates: start: 20221205, end: 20221205

REACTIONS (12)
  - Small intestinal obstruction [Unknown]
  - Colostomy [Recovering/Resolving]
  - Diarrhoea [Unknown]
  - Decreased appetite [Unknown]
  - Abdominal pain [Unknown]
  - Flatulence [Unknown]
  - Frequent bowel movements [Unknown]
  - Asthenia [Unknown]
  - Nausea [Unknown]
  - Fatigue [Recovered/Resolved]
  - Post procedural fever [Recovered/Resolved]
  - Vomiting [Unknown]

NARRATIVE: CASE EVENT DATE: 20230101
